FAERS Safety Report 8387790-0 (Version None)
Quarter: 2012Q2

REPORT INFORMATION
  Report Type: 
  Country: None (occurrence: None)
  Receive Date: 20120525
  Receipt Date: 20120523
  Transmission Date: 20120825
  Serious: Yes (Other)
  Sender: FDA-Public Use
  Company Number: KE-GLAXOSMITHKLINE-B0803361A

PATIENT
  Age: 22 Year
  Sex: Male

DRUGS (1)
  1. CEFUROXIME [Suspect]
     Indication: PRODUCT USED FOR UNKNOWN INDICATION
     Dosage: 500MG UNKNOWN
     Route: 065

REACTIONS (2)
  - JAUNDICE [None]
  - SWELLING [None]
